FAERS Safety Report 4461976-X (Version None)
Quarter: 2004Q3

REPORT INFORMATION
  Report Type: 
  Country: None (occurrence: None)
  Receive Date: 20040923
  Receipt Date: 20040914
  Transmission Date: 20050211
  Serious: Yes (Hospitalization)
  Sender: FDA-Public Use
  Company Number: 2004233448CH

PATIENT
  Sex: Female

DRUGS (5)
  1. ALDACTONE [Suspect]
     Dosage: 50 MG, QD, ORAL
     Route: 048
     Dates: end: 20040617
  2. TOREM (TORSEMIDE) [Suspect]
     Dosage: 10 MG, QD, ORAL
     Route: 048
     Dates: end: 20040617
  3. BLOPRESS (CANDESARTAN CILEXETIL) [Suspect]
     Dosage: ORAL
     Route: 048
     Dates: end: 20040617
  4. CORDARONE [Concomitant]
  5. CARDIOASPIRIN [Concomitant]

REACTIONS (7)
  - BRADYARRHYTHMIA [None]
  - CARDIAC FAILURE [None]
  - CHEST PAIN [None]
  - CONDITION AGGRAVATED [None]
  - HYPERKALAEMIA [None]
  - PARAESTHESIA [None]
  - RENAL FAILURE CHRONIC [None]
